FAERS Safety Report 4294151-2 (Version None)
Quarter: 2004Q1

REPORT INFORMATION
  Report Type: 
  Country: None (occurrence: None)
  Receive Date: 20040213
  Receipt Date: 20031216
  Transmission Date: 20041129
  Serious: Yes (Hospitalization)
  Sender: FDA-Public Use
  Company Number: PHFR2003GB04852

PATIENT
  Age: 45 Year
  Sex: Male

DRUGS (9)
  1. CLOZARIL [Suspect]
     Indication: MEDICATION ERROR
     Dosage: 500MG OVERDOSE
  2. VALPROATE SODIUM [Concomitant]
     Dosage: 400 MG, TID
     Route: 048
  3. CHLORPROMAZINE [Concomitant]
     Dosage: 50 MG, QID
     Route: 048
  4. PROPRANOLOL [Concomitant]
     Dosage: 80 MG, QD
     Route: 048
  5. LANSOPRAZOLE [Concomitant]
     Dosage: 15 MG, QD
     Route: 048
  6. VENLAFAXINE HCL [Concomitant]
     Dosage: 75 MG, QD
     Route: 048
  7. SENNA [Concomitant]
  8. CELEVAC [Concomitant]
     Dosage: 500 MG, BID
     Route: 065
  9. LACTULOSE [Concomitant]
     Dosage: 15 ML, BID
     Route: 065

REACTIONS (4)
  - ABDOMINAL PAIN [None]
  - ACCIDENTAL EXPOSURE [None]
  - CONVULSION [None]
  - HALLUCINATION [None]
